FAERS Safety Report 21446628 (Version 1)
Quarter: 2022Q4

REPORT INFORMATION
  Report Type: Spontaneous
  Country: US (occurrence: None)
  Receive Date: 20221011
  Receipt Date: 20221011
  Transmission Date: 20230113
  Serious: Yes (Life-Threatening, Hospitalization, Other)
  Sender: FDA-Public Use
  Company Number: None

PATIENT
  Age: 77 Year
  Sex: Male
  Weight: 102 kg

DRUGS (1)
  1. LENALIDOMIDE [Suspect]
     Active Substance: LENALIDOMIDE
     Indication: Neoplasm malignant
     Dosage: 5 MG UD PO?
     Route: 048
     Dates: start: 20200917, end: 20220507

REACTIONS (3)
  - Pancytopenia [None]
  - Contusion [None]
  - Therapy interrupted [None]

NARRATIVE: CASE EVENT DATE: 20220306
